FAERS Safety Report 16114370 (Version 1)
Quarter: 2019Q1

REPORT INFORMATION
  Report Type: Spontaneous
  Country: US (occurrence: US)
  Receive Date: 20190325
  Receipt Date: 20190325
  Transmission Date: 20190418
  Serious: No
  Sender: FDA-Public Use
  Company Number: US-TEIKOKU PHARMA USA-TPU2019-00200

PATIENT
  Sex: Female

DRUGS (2)
  1. FLECTOR [Concomitant]
     Active Substance: DICLOFENAC EPOLAMINE
     Indication: WRIST FRACTURE
  2. LIDODERM [Suspect]
     Active Substance: LIDOCAINE
     Indication: WRIST FRACTURE

REACTIONS (1)
  - Drug ineffective for unapproved indication [Unknown]
